FAERS Safety Report 7354958-1 (Version None)
Quarter: 2011Q1

REPORT INFORMATION
  Report Type: 
  Country: None (occurrence: None)
  Receive Date: 20110311
  Receipt Date: 20110311
  Transmission Date: 20110831
  Serious: Yes (Other)
  Sender: FDA-Public Use
  Company Number: None

PATIENT
  Age: 39 Year
  Sex: Female
  Weight: 59.8748 kg

DRUGS (1)
  1. PRAMIPEXOLE DIHYDROCHLORIDE [Suspect]
     Indication: TREMOR
     Dosage: 1 MG 3 X DAILY ORALLY
     Route: 048
     Dates: start: 20110217, end: 20110219

REACTIONS (2)
  - VOMITING [None]
  - HEADACHE [None]
